FAERS Safety Report 22343950 (Version 1)
Quarter: 2023Q2

REPORT INFORMATION
  Report Type: Spontaneous
  Country: AT (occurrence: AT)
  Receive Date: 20230519
  Receipt Date: 20230519
  Transmission Date: 20230722
  Serious: Yes (Other)
  Sender: FDA-Public Use
  Company Number: AT-PFIZER INC-202300194235

PATIENT
  Sex: Male

DRUGS (12)
  1. OXALIPLATIN [Suspect]
     Active Substance: OXALIPLATIN
     Indication: Colon cancer
     Dosage: THREE CYCLES
     Dates: start: 201501, end: 201502
  2. OXALIPLATIN [Suspect]
     Active Substance: OXALIPLATIN
     Dosage: 6 CYCLES
     Dates: start: 201503, end: 201508
  3. OXALIPLATIN [Suspect]
     Active Substance: OXALIPLATIN
     Dosage: UNK
     Dates: start: 201510, end: 201604
  4. BEVACIZUMAB [Concomitant]
     Active Substance: BEVACIZUMAB
     Indication: Colon cancer
     Dosage: THREE CYCLES
     Dates: start: 201501, end: 201502
  5. BEVACIZUMAB [Concomitant]
     Active Substance: BEVACIZUMAB
     Dosage: 6 CYCLES
     Dates: start: 201503, end: 201508
  6. BEVACIZUMAB [Concomitant]
     Active Substance: BEVACIZUMAB
     Dosage: UNK
     Dates: start: 201510, end: 201604
  7. LEUCOVORIN [Concomitant]
     Active Substance: LEUCOVORIN
     Dosage: THREE CYCLES
     Route: 065
     Dates: start: 201501, end: 201502
  8. LEUCOVORIN [Concomitant]
     Active Substance: LEUCOVORIN
     Dosage: 6 CYCLES
     Route: 065
     Dates: start: 201503, end: 201508
  9. LEUCOVORIN [Concomitant]
     Active Substance: LEUCOVORIN
     Dosage: UNK
     Dates: start: 201510, end: 201604
  10. FLUOROURACIL [Concomitant]
     Active Substance: FLUOROURACIL
     Indication: Colon cancer
     Dosage: THREE CYCLES
     Route: 065
     Dates: start: 201501, end: 201502
  11. FLUOROURACIL [Concomitant]
     Active Substance: FLUOROURACIL
     Dosage: 6 CYCLES
     Route: 065
     Dates: start: 201503, end: 201508
  12. FLUOROURACIL [Concomitant]
     Active Substance: FLUOROURACIL
     Dosage: UNK
     Route: 065
     Dates: start: 201510, end: 201604

REACTIONS (1)
  - Polyneuropathy [Unknown]
